FAERS Safety Report 9522500 (Version 2)
Quarter: 2014Q1

REPORT INFORMATION
  Report Type: Spontaneous
  Country: DE (occurrence: DE)
  Receive Date: 20130913
  Receipt Date: 20140116
  Transmission Date: 20141002
  Serious: Yes (Death, Life-Threatening, Hospitalization)
  Sender: FDA-Public Use
  Company Number: DE-B.I. PHARMACEUTICALS,INC./RIDGEFIELD-2013-BI-28536DE

PATIENT
  Age: 75 Year
  Sex: Male

DRUGS (1)
  1. PRADAXA [Suspect]
     Indication: ATRIAL FIBRILLATION
     Dosage: 300 MG

REACTIONS (5)
  - Haemorrhage [Fatal]
  - Hemiparesis [Not Recovered/Not Resolved]
  - Aortic dissection [Not Recovered/Not Resolved]
  - Chest discomfort [Unknown]
  - Myocardial ischaemia [Unknown]
